FAERS Safety Report 5072004-X (Version None)
Quarter: 2006Q3

REPORT INFORMATION
  Report Type: 
  Country: None (occurrence: None)
  Receive Date: 20060801
  Receipt Date: 20060724
  Transmission Date: 20061208
  Serious: Yes (Death)
  Sender: FDA-Public Use
  Company Number: 2006PV014711

PATIENT
  Age: 52 Year
  Sex: Female
  Weight: 84.369 kg

DRUGS (5)
  1. BYETTA [Suspect]
     Indication: DIABETES MELLITUS NON-INSULIN-DEPENDENT
     Dosage: SEE IMAGE
     Route: 058
     Dates: start: 20060424, end: 20060101
  2. BYETTA [Suspect]
     Indication: DIABETES MELLITUS NON-INSULIN-DEPENDENT
     Dosage: SEE IMAGE
     Route: 058
     Dates: start: 20060101, end: 20060713
  3. LANTUS [Concomitant]
  4. METFORMIN [Concomitant]
  5. PREDNISONE TAB [Concomitant]

REACTIONS (10)
  - DIABETIC FOOT INFECTION [None]
  - DIABETIC ULCER [None]
  - FOOT FRACTURE [None]
  - MYOCARDIAL INFARCTION [None]
  - NAUSEA [None]
  - RIB FRACTURE [None]
  - SUDDEN DEATH [None]
  - VOMITING [None]
  - WEIGHT DECREASED [None]
  - WRIST FRACTURE [None]
